FAERS Safety Report 14313109 (Version 1)
Quarter: 2017Q4

REPORT INFORMATION
  Report Type: Spontaneous
  Country: US (occurrence: US)
  Receive Date: 20171220
  Receipt Date: 20171220
  Transmission Date: 20180321
  Serious: No
  Sender: FDA-Public Use
  Company Number: None

PATIENT
  Sex: Female

DRUGS (1)
  1. IBRANCE [Suspect]
     Active Substance: PALBOCICLIB
     Indication: METASTASES TO BREAST
     Dosage: 125MG DAILY FOR 21 DAYS OF 28 DAY CYCLE BY MOUTH
     Route: 048
     Dates: start: 20150815

REACTIONS (2)
  - Rash [None]
  - Blister [None]
